FAERS Safety Report 14417572 (Version 2)
Quarter: 2018Q1

REPORT INFORMATION
  Report Type: Report from Study
  Country: US (occurrence: US)
  Receive Date: 20180122
  Receipt Date: 20180131
  Transmission Date: 20180509
  Serious: Yes (Hospitalization)
  Sender: FDA-Public Use
  Company Number: US-BRISTOL-MYERS SQUIBB COMPANY-BMS-2018-003685

PATIENT
  Age: 71 Year
  Sex: Female
  Weight: 60.4 kg

DRUGS (2)
  1. NIVOLUMAB [Suspect]
     Active Substance: NIVOLUMAB
     Indication: OVARIAN CANCER
     Dosage: 240 MG, UNK
     Route: 042
     Dates: start: 20171206, end: 20171220
  2. IPILIMUMAB [Suspect]
     Active Substance: IPILIMUMAB
     Indication: OVARIAN CANCER
     Dosage: 1 MG/KG, UNK
     Route: 042
     Dates: start: 20171206, end: 20171206

REACTIONS (6)
  - Dysphagia [Unknown]
  - Troponin T increased [Recovering/Resolving]
  - Dyspnoea [Unknown]
  - Myositis [Unknown]
  - Pneumonitis [Unknown]
  - Blood creatine phosphokinase increased [Recovering/Resolving]

NARRATIVE: CASE EVENT DATE: 20171227
